FAERS Safety Report 7306222-4 (Version None)
Quarter: 2011Q1

REPORT INFORMATION
  Report Type: 
  Country: None (occurrence: None)
  Receive Date: 20110222
  Receipt Date: 20110209
  Transmission Date: 20110831
  Serious: Yes (Hospitalization)
  Sender: FDA-Public Use
  Company Number: PHHY2011GB10326

PATIENT
  Sex: Male

DRUGS (2)
  1. DIAZEPAM [Suspect]
  2. LYRICA [Suspect]
     Indication: GENERALISED ANXIETY DISORDER

REACTIONS (2)
  - DRUG DEPENDENCE [None]
  - SUICIDAL IDEATION [None]
